FAERS Safety Report 19666595 (Version 1)
Quarter: 2021Q3

REPORT INFORMATION
  Report Type: Report from Study
  Country: KR (occurrence: KR)
  Receive Date: 20210806
  Receipt Date: 20210806
  Transmission Date: 20211014
  Serious: Yes (Other)
  Sender: FDA-Public Use
  Company Number: KR-CELLTRION INC.-2021KR010194

PATIENT

DRUGS (1)
  1. REMSIMA [Suspect]
     Active Substance: INFLIXIMAB
     Indication: ANKYLOSING SPONDYLITIS
     Dosage: LAST ADMINISTRATION DATE BEFORE REPORTING WAS 26 APR 2021
     Dates: start: 20210426, end: 20210426

REACTIONS (2)
  - Supraventricular tachycardia [Recovered/Resolved]
  - Cardiac ablation [Recovered/Resolved]
